FAERS Safety Report 8903463 (Version 3)
Quarter: 2013Q1

REPORT INFORMATION
  Report Type: Report from Study
  Country: CA (occurrence: CA)
  Receive Date: 20121113
  Receipt Date: 20130108
  Transmission Date: 20140127
  Serious: Yes (Other)
  Sender: FDA-Public Use
  Company Number: CA-JNJFOC-20121103340

PATIENT
  Sex: Female
  Weight: 85.6 kg

DRUGS (6)
  1. REMICADE [Suspect]
     Indication: RHEUMATOID ARTHRITIS
     Route: 042
     Dates: start: 20080108
  2. REMICADE [Suspect]
     Indication: RHEUMATOID ARTHRITIS
     Route: 042
     Dates: start: 20080212
  3. ANTIHYPERTENSIVES [Concomitant]
     Route: 065
  4. IMURAN [Concomitant]
     Route: 065
  5. CALCIUM [Concomitant]
     Route: 065
  6. TYLENOL [Concomitant]
     Route: 065

REACTIONS (2)
  - Diverticulitis [Recovered/Resolved]
  - Sinusitis [Unknown]
